FAERS Safety Report 19191111 (Version 1)
Quarter: 2021Q2

REPORT INFORMATION
  Report Type: Spontaneous
  Country: DE (occurrence: DE)
  Receive Date: 20210428
  Receipt Date: 20210428
  Transmission Date: 20210717
  Serious: Yes (Death, Life-Threatening, Other)
  Sender: FDA-Public Use
  Company Number: DE-PURDUE-USA-2021-0252015

PATIENT
  Age: 25 Year
  Sex: Female

DRUGS (6)
  1. ALPRAZOLAM. [Suspect]
     Active Substance: ALPRAZOLAM
     Indication: PRODUCT USED FOR UNKNOWN INDICATION
     Dosage: UNK
     Route: 048
  2. MODAFINIL. [Interacting]
     Active Substance: MODAFINIL
     Indication: PRODUCT USED FOR UNKNOWN INDICATION
     Dosage: UNK
     Route: 065
  3. GABAPENTIN. [Suspect]
     Active Substance: GABAPENTIN
     Indication: PRODUCT USED FOR UNKNOWN INDICATION
     Dosage: UNK
     Route: 065
  4. NITRAZEPAM [Suspect]
     Active Substance: NITRAZEPAM
     Indication: PRODUCT USED FOR UNKNOWN INDICATION
     Dosage: UNK
     Route: 065
  5. AMPHETAMINE [Interacting]
     Active Substance: AMPHETAMINE
     Indication: PRODUCT USED FOR UNKNOWN INDICATION
     Dosage: UNK
     Route: 051
  6. NON?PMN METHYLPHENIDATE HYDROCHLORIDE [Suspect]
     Active Substance: METHYLPHENIDATE HYDROCHLORIDE
     Indication: PRODUCT USED FOR UNKNOWN INDICATION
     Dosage: UNK
     Route: 051

REACTIONS (16)
  - Delirium [Unknown]
  - Psychotic disorder [Unknown]
  - Arrhythmia [Fatal]
  - Brain oedema [Unknown]
  - Toxicity to various agents [Unknown]
  - Fatigue [Unknown]
  - Drug abuse [Unknown]
  - Metabolic acidosis [Unknown]
  - Blood lactic acid increased [Unknown]
  - Dyspnoea [Unknown]
  - Enzyme abnormality [Unknown]
  - Cardiac arrest [Fatal]
  - Drug interaction [Unknown]
  - Fall [Unknown]
  - Hyperthermia [Unknown]
  - Blood electrolytes increased [Unknown]
